FAERS Safety Report 19448979 (Version 1)
Quarter: 2021Q2

REPORT INFORMATION
  Report Type: Spontaneous
  Country: TR (occurrence: TR)
  Receive Date: 20210622
  Receipt Date: 20210622
  Transmission Date: 20210717
  Serious: Yes (Death, Hospitalization)
  Sender: FDA-Public Use
  Company Number: TR-PFIZER INC-2021679425

PATIENT
  Age: 55 Year
  Sex: Female

DRUGS (5)
  1. PIPERACILLIN/TAZOBACTAM [Suspect]
     Active Substance: PIPERACILLIN SODIUM\TAZOBACTAM SODIUM
     Indication: COVID-19 PNEUMONIA
     Dosage: UNK
     Dates: start: 202004
  2. HYDROXYCHLOROQUINE [Suspect]
     Active Substance: HYDROXYCHLOROQUINE
     Indication: COVID-19 PNEUMONIA
     Dosage: UNK
     Dates: start: 202004
  3. IMMUNOGLOBULIN HUMAN NORMAL [Suspect]
     Active Substance: HUMAN IMMUNOGLOBULIN G
     Indication: COVID-19 PNEUMONIA
     Dosage: 400 MG/KG
     Route: 042
     Dates: start: 202004
  4. FAVIPIRAVIR [Suspect]
     Active Substance: FAVIPIRAVIR
     Indication: COVID-19 PNEUMONIA
     Dosage: UNK
     Dates: start: 202004
  5. AZITHROMYCIN ANHYDROUS. [Suspect]
     Active Substance: AZITHROMYCIN ANHYDROUS
     Indication: COVID-19 PNEUMONIA
     Dosage: UNK
     Dates: start: 202004

REACTIONS (2)
  - Off label use [Fatal]
  - Drug ineffective for unapproved indication [Fatal]
